FAERS Safety Report 10740081 (Version 3)
Quarter: 2016Q1

REPORT INFORMATION
  Report Type: Spontaneous
  Country: IT (occurrence: IT)
  Receive Date: 20150127
  Receipt Date: 20160112
  Transmission Date: 20160525
  Serious: Yes (Other)
  Sender: FDA-Public Use
  Company Number: IT-ROCHE-1524206

PATIENT
  Age: 62 Year
  Sex: Female
  Weight: 64 kg

DRUGS (3)
  1. ZELBORAF [Suspect]
     Active Substance: VEMURAFENIB
     Dosage: 3 TABLETS + 3 TABLETS
     Route: 048
     Dates: start: 20141029, end: 20150106
  2. ZELBORAF [Suspect]
     Active Substance: VEMURAFENIB
     Indication: METASTATIC MALIGNANT MELANOMA
     Route: 048
     Dates: start: 20141029
  3. ZELBORAF [Suspect]
     Active Substance: VEMURAFENIB
     Dosage: 2 TABLETS + 2 TABLETS
     Route: 048
     Dates: start: 20150112, end: 20150116

REACTIONS (5)
  - Erythema [Recovered/Resolved]
  - Pruritus [Recovered/Resolved]
  - Vaginal inflammation [Recovered/Resolved]
  - Hyperkeratosis lenticularis perstans [Recovered/Resolved]
  - Stomatitis [Recovered/Resolved]

NARRATIVE: CASE EVENT DATE: 20141202
